FAERS Safety Report 16892870 (Version 1)
Quarter: 2019Q4

REPORT INFORMATION
  Report Type: Spontaneous
  Country: US (occurrence: US)
  Receive Date: 20191007
  Receipt Date: 20191007
  Transmission Date: 20200122
  Serious: Yes (Death)
  Sender: FDA-Public Use
  Company Number: US-SENTYNL THERAPEUTICS, INC.  -2075389

PATIENT
  Age: 74 Year
  Sex: Female
  Weight: 105.45 kg

DRUGS (1)
  1. ABSTRAL [Suspect]
     Active Substance: FENTANYL CITRATE
     Indication: OSTEOARTHRITIS
     Route: 060
     Dates: start: 20171019

REACTIONS (1)
  - Death [Fatal]
